FAERS Safety Report 17954808 (Version 1)
Quarter: 2020Q2

REPORT INFORMATION
  Report Type: Report from Study
  Country: TR (occurrence: TR)
  Receive Date: 20200629
  Receipt Date: 20200629
  Transmission Date: 20200714
  Serious: Yes (Death, Other)
  Sender: FDA-Public Use
  Company Number: TR-TEVA-2020-TR-1793176

PATIENT
  Age: 13 Year
  Sex: Female

DRUGS (5)
  1. ADRIAMYCIN [Suspect]
     Active Substance: DOXORUBICIN HYDROCHLORIDE
     Indication: PRIMITIVE NEUROECTODERMAL TUMOUR
     Route: 065
  2. DIMETHYL SULFOXIDE. [Suspect]
     Active Substance: DIMETHYL SULFOXIDE
     Indication: PRODUCT USED FOR UNKNOWN INDICATION
     Route: 065
  3. MELPHALAN. [Suspect]
     Active Substance: MELPHALAN
     Indication: PRIMITIVE NEUROECTODERMAL TUMOUR
     Route: 065
  4. CYCLOPHOSPHAMIDE. [Suspect]
     Active Substance: CYCLOPHOSPHAMIDE
     Indication: PRIMITIVE NEUROECTODERMAL TUMOUR
     Route: 065
  5. CARBOPLATIN. [Suspect]
     Active Substance: CARBOPLATIN
     Indication: PRIMITIVE NEUROECTODERMAL TUMOUR
     Route: 065

REACTIONS (3)
  - Cardiac arrest [Fatal]
  - Pericarditis [Unknown]
  - Pericardial effusion [Unknown]
